FAERS Safety Report 8022502-1 (Version None)
Quarter: 2011Q4

REPORT INFORMATION
  Report Type: 
  Country: None (occurrence: None)
  Receive Date: 20111230
  Receipt Date: 20111213
  Transmission Date: 20120403
  Serious: Yes (Other)
  Sender: FDA-Public Use
  Company Number: 2011SP058367

PATIENT
  Age: 37 Year
  Sex: Male
  Weight: 101 kg

DRUGS (2)
  1. SYCREST (ASENAPINE /05706901/) [Suspect]
     Indication: BIPOLAR DISORDER
     Dosage: 5 MG;QD;SL
     Route: 060
     Dates: start: 20110930
  2. SEROQUEL [Concomitant]

REACTIONS (3)
  - PANCREATITIS ACUTE [None]
  - EJACULATION DISORDER [None]
  - BLOOD ALKALINE PHOSPHATASE INCREASED [None]
